FAERS Safety Report 12816837 (Version 1)
Quarter: 2016Q4

REPORT INFORMATION
  Report Type: Spontaneous
  Country: US (occurrence: US)
  Receive Date: 20161005
  Receipt Date: 20161005
  Transmission Date: 20170207
  Serious: Yes (Other)
  Sender: FDA-Public Use
  Company Number: None

PATIENT
  Age: 76 Year
  Sex: Female
  Weight: 55.8 kg

DRUGS (2)
  1. METRONIDAZOLE 500 MG PLIVA, INC [Suspect]
     Active Substance: METRONIDAZOLE
     Indication: DIVERTICULITIS
     Dosage: OTHER EVERY 8 HOURS ORAL
     Route: 048
  2. METRONIDAZOLE 500 MG PLIVA, INC [Suspect]
     Active Substance: METRONIDAZOLE
     Indication: COLITIS
     Dosage: OTHER EVERY 8 HOURS ORAL
     Route: 048

REACTIONS (6)
  - Diarrhoea [None]
  - Abdominal pain upper [None]
  - Paraesthesia [None]
  - Dizziness [None]
  - Tendonitis [None]
  - Nausea [None]

NARRATIVE: CASE EVENT DATE: 20160925
